FAERS Safety Report 8763391 (Version 1)
Quarter: 2012Q4

REPORT INFORMATION
  Report Type: 
  Country: US (occurrence: US)
  Receive Date: 20120831
  Receipt Date: 20120831
  Transmission Date: 20130627
  Serious: No
  Sender: FDA-Public Use
  Company Number: US-009507513-1205USA05376

PATIENT

DRUGS (1)
  1. AZASITE [Suspect]
     Dosage: 2 DF, tid
     Route: 047
     Dates: start: 20120527

REACTIONS (2)
  - Overdose [Unknown]
  - No adverse event [Unknown]
